FAERS Safety Report 5471575-9 (Version None)
Quarter: 2007Q3

REPORT INFORMATION
  Report Type: 
  Country: None (occurrence: None)
  Receive Date: 20070928
  Receipt Date: 20070122
  Transmission Date: 20080115
  Serious: No
  Sender: FDA-Public Use
  Company Number: US-BRISTOL-MYERS SQUIBB COMPANY-13650759

PATIENT
  Age: 40 Year
  Sex: Male
  Weight: 103 kg

DRUGS (10)
  1. DEFINITY [Suspect]
     Indication: ECHOCARDIOGRAM
     Dosage: IN NORMAL SALINE
     Route: 042
     Dates: start: 20070119, end: 20070119
  2. LORAZEPAM [Concomitant]
  3. OXYBUTYNIN CHLORIDE [Concomitant]
  4. TRAZODONE HCL [Concomitant]
  5. PRILOSEC [Concomitant]
  6. ALLEGRA [Concomitant]
  7. ADDERALL 20 [Concomitant]
  8. VICODIN [Concomitant]
  9. ZYPREXA [Concomitant]
  10. FLUVOXAMINE MALEATE [Concomitant]

REACTIONS (1)
  - FLUSHING [None]
